FAERS Safety Report 20560962 (Version 1)
Quarter: 2022Q1

REPORT INFORMATION
  Report Type: Spontaneous
  Country: US (occurrence: US)
  Receive Date: 20220307
  Receipt Date: 20220307
  Transmission Date: 20220423
  Serious: No
  Sender: FDA-Public Use
  Company Number: US-Vifor (International) Inc.-VIT-2022-01026

PATIENT
  Age: 57 Year
  Sex: Female

DRUGS (2)
  1. MIRCERA [Suspect]
     Active Substance: METHOXY POLYETHYLENE GLYCOL-EPOETIN BETA
     Indication: Product used for unknown indication
     Dosage: DOSE NUMBER: 1, DOSE CATEGORY: 1
     Dates: start: 20211201
  2. VITAMIN D [Concomitant]
     Active Substance: VITAMIN D NOS
     Route: 048

REACTIONS (4)
  - Drug hypersensitivity [Recovered/Resolved]
  - Feeling hot [Recovered/Resolved]
  - Nausea [Recovered/Resolved]
  - Vomiting [Recovered/Resolved]

NARRATIVE: CASE EVENT DATE: 20211201
